FAERS Safety Report 8905647 (Version 1)
Quarter: 2012Q4

REPORT INFORMATION
  Report Type: 
  Country: DE (occurrence: DE)
  Receive Date: 20121111
  Receipt Date: 20121111
  Transmission Date: 20130627
  Serious: Yes (Hospitalization, Other)
  Sender: FDA-Public Use
  Company Number: PHHY2011DE07609

PATIENT
  Age: 48 Year
  Sex: Female

DRUGS (1)
  1. EXTAVIA [Suspect]
     Indication: MULTIPLE SCLEROSIS
     Dosage: 250 ug, QOD
     Route: 058
     Dates: start: 20100201

REACTIONS (3)
  - Multiple sclerosis relapse [Unknown]
  - Thyroid neoplasm [Recovered/Resolved]
  - Visual impairment [Recovered/Resolved]
